FAERS Safety Report 18817689 (Version 1)
Quarter: 2021Q1

REPORT INFORMATION
  Report Type: Spontaneous
  Country: US (occurrence: US)
  Receive Date: 20210201
  Receipt Date: 20210201
  Transmission Date: 20210419
  Serious: No
  Sender: FDA-Public Use
  Company Number: US-SERB S.A.S.-2106115

PATIENT
  Age: 58 Year
  Sex: Male
  Weight: 85 kg

DRUGS (2)
  1. NOREPINEPHRINE. [Concomitant]
     Active Substance: NOREPINEPHRINE
  2. CYANOKIT [Suspect]
     Active Substance: HYDROXOCOBALAMIN
     Indication: SHOCK
     Route: 042

REACTIONS (4)
  - Chromaturia [Unknown]
  - Drug-device interaction [Recovered/Resolved]
  - Product use in unapproved indication [Unknown]
  - Therapy interrupted [Unknown]
